FAERS Safety Report 9632248 (Version 2)
Quarter: 2013Q4

REPORT INFORMATION
  Report Type: Report from Study
  Country: BE (occurrence: BE)
  Receive Date: 20131018
  Receipt Date: 20131018
  Transmission Date: 20140711
  Serious: Yes (Hospitalization)
  Sender: FDA-Public Use
  Company Number: BE-ROCHE-646686

PATIENT
  Age: 54 Year
  Sex: Female
  Weight: 100.6 kg

DRUGS (6)
  1. BEVACIZUMAB [Suspect]
     Indication: BREAST CANCER
     Dosage: LAST DOSE PRIOR TO EVENT ON 09 JULY 2009, DOSE: 15 MG/KG, FORM: VIAL
     Route: 042
  2. TRASTUZUMAB [Suspect]
     Indication: BREAST CANCER
     Dosage: LAST DOSE PRIOR TO EVENT ON 09 JULY 2009, DOSE: 6 MG/KG, FORM: VIAL
     Route: 042
  3. DOCETAXEL [Suspect]
     Indication: BREAST CANCER
     Dosage: LAST DOSE PRIOR TO EVENT: 09 JULY 2009, FORM: VIAL, DOSE: 75 MG/M2
     Route: 042
  4. DOCETAXEL [Suspect]
     Dosage: LAST DOSE PRIOR TO EVENT: 10 SEPTEMBER 2009, FORM: VIAL, DOSE: 60 MG/M2
     Route: 042
  5. CARBOPLATIN [Suspect]
     Indication: BREAST CANCER
     Dosage: LAST DOSE PRIOR TO EVENT ON 09 JULY 2009, DOSE: 6 AUC, FORM: VIAL
     Route: 042
  6. CARBOPLATIN [Suspect]
     Dosage: LAST DOSE PRIOR TO SAE 10 SEPTEMBER 2009, DOSE 5 AUC.
     Route: 042

REACTIONS (4)
  - Dehydration [Recovered/Resolved]
  - Nausea [Recovered/Resolved]
  - Diarrhoea [Recovered/Resolved]
  - Thrombocytopenia [Recovered/Resolved]
